FAERS Safety Report 6011643-6 (Version None)
Quarter: 2008Q4

REPORT INFORMATION
  Report Type: 
  Country: None (occurrence: None)
  Receive Date: 20081218
  Receipt Date: 20080526
  Transmission Date: 20090506
  Serious: No
  Sender: FDA-Public Use
  Company Number: US-BAYER-200812366BCC

PATIENT
  Age: 21 Year
  Sex: Female
  Weight: 57 kg

DRUGS (2)
  1. ALEVE [Suspect]
     Indication: BACK PAIN
     Dosage: TOTAL DAILY DOSE: 1760 MG  UNIT DOSE: 220 MG
     Route: 048
     Dates: start: 20080526
  2. ADVIL LIQUI-GELS [Concomitant]
     Indication: BACK PAIN
     Dosage: AS USED: 400 MG  UNIT DOSE: 200 MG
     Route: 048

REACTIONS (1)
  - NO ADVERSE EVENT [None]
